FAERS Safety Report 10094358 (Version 1)
Quarter: 2014Q2

REPORT INFORMATION
  Report Type: Spontaneous
  Country: US (occurrence: None)
  Receive Date: 20140421
  Receipt Date: 20140421
  Transmission Date: 20141212
  Serious: Yes (Disabling, Other)
  Sender: FDA-Public Use
  Company Number: None

PATIENT
  Age: 22 Year
  Sex: Female

DRUGS (1)
  1. MIRENA [Suspect]
     Indication: CONTRACEPTION
     Dosage: 1 DEVICE, 5 YEAR IMPLANT, VAGINAL
     Route: 067
     Dates: start: 20120206, end: 20140415

REACTIONS (9)
  - Anxiety [None]
  - Depression [None]
  - Muscle spasms [None]
  - Eczema [None]
  - Weight increased [None]
  - Headache [None]
  - Mood swings [None]
  - Lethargy [None]
  - Libido decreased [None]
